FAERS Safety Report 9788525 (Version 4)
Quarter: 2014Q1

REPORT INFORMATION
  Report Type: Spontaneous
  Country: US (occurrence: None)
  Receive Date: 20131227
  Receipt Date: 20140210
  Transmission Date: 20141002
  Serious: Yes (Life-Threatening, Hospitalization, Other)
  Sender: FDA-Public Use
  Company Number: FK201305540

PATIENT
  Age: 29 Year
  Sex: Male
  Weight: 134 kg

DRUGS (8)
  1. PROPOFOL [Suspect]
     Indication: ANAESTHESIA
     Dosage: 50 MG, TOTAL DOSE 310MG, INTRAVENOUS (NOT OTHERWISE SPECIFIED)
     Route: 042
     Dates: start: 20131219
  2. ZEMURON [Suspect]
     Indication: PRODUCT USED FOR UNKNOWN INDICATION
     Dosage: 50 MG, TOTAL DOSE 130MG, INTRAVENOUS (NOT OTHERWISE SPECIFIED)
     Route: 042
  3. SUCCINYLCHOLINE (SUXAMETHONIUM CHLORIDE) [Concomitant]
     Dosage: 25 UG, PER HOUR: TITRATE TO COMFORT, INTRAVENOUS (NOT OTHERWISE SPECIFIED)
     Route: 042
     Dates: start: 20131219
  4. LIDOCAINE (LIDOCAINE) [Concomitant]
  5. SUCCINYLCHOLINE (SUXAMETHONIUM CHLORIDE) [Concomitant]
  6. ZOFRAN (ONDANSETRON) [Concomitant]
  7. PHENERGAN (PROMETHAZINE) [Concomitant]
  8. SODIUM CHLORIDE  (SODIUM CHLORIDE) [Concomitant]

REACTIONS (6)
  - Blood pressure decreased [None]
  - Unresponsive to stimuli [None]
  - Haemorrhage [None]
  - Haematemesis [None]
  - Mallory-Weiss syndrome [None]
  - Hypovolaemic shock [None]
